FAERS Safety Report 7651512-9 (Version None)
Quarter: 2011Q3

REPORT INFORMATION
  Report Type: 
  Country: None (occurrence: None)
  Receive Date: 20110802
  Receipt Date: 20110728
  Transmission Date: 20111222
  Serious: Yes (Life-Threatening, Hospitalization, Other)
  Sender: FDA-Public Use
  Company Number: PHHY2011FR55916

PATIENT
  Sex: Female

DRUGS (3)
  1. TASIGNA [Suspect]
     Indication: CHRONIC MYELOID LEUKAEMIA
     Dosage: UNK
     Dates: start: 20100201, end: 20110401
  2. TASIGNA [Suspect]
     Dosage: 400 MG, BID
     Route: 048
     Dates: start: 20100506, end: 20110409
  3. TASIGNA [Suspect]
     Dosage: 400 MG,DAILY
     Route: 048
     Dates: start: 20110705

REACTIONS (7)
  - PERICARDIAL EFFUSION [None]
  - PLEURAL EFFUSION [None]
  - ASTHENIA [None]
  - CARDIAC TAMPONADE [None]
  - CARDIOGENIC SHOCK [None]
  - VISION BLURRED [None]
  - PLEUROPERICARDITIS [None]
